FAERS Safety Report 6628250-4 (Version None)
Quarter: 2010Q1

REPORT INFORMATION
  Report Type: 
  Country: None (occurrence: None)
  Receive Date: 20100311
  Receipt Date: 20100304
  Transmission Date: 20100710
  Serious: Yes (Hospitalization)
  Sender: FDA-Public Use
  Company Number: PHHO2009CH15732

PATIENT
  Sex: Female
  Weight: 74.3 kg

DRUGS (2)
  1. NEORAL [Suspect]
     Indication: RENAL TRANSPLANT
     Dosage: 500 MG
     Route: 048
     Dates: start: 20091211, end: 20091217
  2. CERTICAN [Suspect]
     Indication: RENAL TRANSPLANT
     Dosage: 3.5 MG
     Route: 048
     Dates: start: 20091211, end: 20091217

REACTIONS (3)
  - BLOOD CREATININE INCREASED [None]
  - DRUG INEFFECTIVE [None]
  - TRANSPLANT REJECTION [None]
